FAERS Safety Report 20136757 (Version 1)
Quarter: 2021Q4

REPORT INFORMATION
  Report Type: Spontaneous
  Country: US (occurrence: US)
  Receive Date: 20211201
  Receipt Date: 20211201
  Transmission Date: 20220303
  Serious: No
  Sender: FDA-Public Use
  Company Number: US-INSUD PHARMA-2111US02925

PATIENT

DRUGS (4)
  1. PROGESTERONE [Suspect]
     Active Substance: PROGESTERONE
     Indication: Hot flush
     Dosage: 100 MG DAILY
     Route: 048
     Dates: start: 20210813, end: 20210815
  2. PROGESTERONE [Suspect]
     Active Substance: PROGESTERONE
     Indication: Sleep disorder
  3. PROGESTERONE [Suspect]
     Active Substance: PROGESTERONE
     Indication: Hot flush
     Dosage: 100 MG DAILY
     Route: 048
     Dates: start: 202108, end: 20210822
  4. PROGESTERONE [Suspect]
     Active Substance: PROGESTERONE
     Indication: Sleep disorder
     Dosage: 100 MG DAILY
     Route: 048
     Dates: start: 202107, end: 202108

REACTIONS (12)
  - Peripheral swelling [Not Recovered/Not Resolved]
  - Peripheral coldness [Not Recovered/Not Resolved]
  - Cyst [Not Recovered/Not Resolved]
  - Joint stiffness [Not Recovered/Not Resolved]
  - Chest pain [Not Recovered/Not Resolved]
  - Respiratory disorder [Not Recovered/Not Resolved]
  - Cough [Not Recovered/Not Resolved]
  - Dysphonia [Not Recovered/Not Resolved]
  - Sleep disorder [Not Recovered/Not Resolved]
  - Back pain [Not Recovered/Not Resolved]
  - Fatigue [Not Recovered/Not Resolved]
  - Off label use [Unknown]

NARRATIVE: CASE EVENT DATE: 20210701
